FAERS Safety Report 16053389 (Version 1)
Quarter: 2019Q1

REPORT INFORMATION
  Report Type: Spontaneous
  Country: US (occurrence: US)
  Receive Date: 20190308
  Receipt Date: 20190308
  Transmission Date: 20190418
  Serious: Yes (Other)
  Sender: FDA-Public Use
  Company Number: US-ASTRAZENECA-2019SE35900

PATIENT
  Age: 20428 Day
  Sex: Male

DRUGS (23)
  1. ONGLYZA [Suspect]
     Active Substance: SAXAGLIPTIN HYDROCHLORIDE
     Indication: DIABETES MELLITUS
     Route: 048
     Dates: start: 2010, end: 2011
  2. DOCUSATE SODIUM. [Concomitant]
     Active Substance: DOCUSATE SODIUM
  3. ENOXAPARIN SODIUM. [Concomitant]
     Active Substance: ENOXAPARIN SODIUM
  4. METOPROLOL TARTRATE. [Concomitant]
     Active Substance: METOPROLOL TARTRATE
  5. DIPHENHYDRAMINE. [Concomitant]
     Active Substance: DIPHENHYDRAMINE
  6. IPRATROPIUM [Concomitant]
     Active Substance: IPRATROPIUM
  7. LORATADINE. [Concomitant]
     Active Substance: LORATADINE
  8. AMLODIPINE BESYLATE. [Concomitant]
     Active Substance: AMLODIPINE BESYLATE
  9. CLONIDINE. [Concomitant]
     Active Substance: CLONIDINE
  10. ACETAMINOPHEN. [Concomitant]
     Active Substance: ACETAMINOPHEN
  11. GUAIFENESIN. [Concomitant]
     Active Substance: GUAIFENESIN
  12. CARVEDILOL. [Concomitant]
     Active Substance: CARVEDILOL
  13. VANCOMYCIN [Concomitant]
     Active Substance: VANCOMYCIN
  14. LABETALOL [Concomitant]
     Active Substance: LABETALOL\LABETALOL HYDROCHLORIDE
  15. PROCARDIA XL [Concomitant]
     Active Substance: NIFEDIPINE
  16. ALLOPURINOL. [Concomitant]
     Active Substance: ALLOPURINOL
  17. METHYLPREDNISOLONE. [Concomitant]
     Active Substance: METHYLPREDNISOLONE
  18. LOVENOX [Concomitant]
     Active Substance: ENOXAPARIN SODIUM
  19. LOSARTAN. [Concomitant]
     Active Substance: LOSARTAN
  20. HYDRALAZINE [Concomitant]
     Active Substance: HYDRALAZINE HYDROCHLORIDE
  21. GLIPIZIDE. [Concomitant]
     Active Substance: GLIPIZIDE
  22. FUROSEMIDE. [Concomitant]
     Active Substance: FUROSEMIDE
  23. ONDANSETRON [Concomitant]
     Active Substance: ONDANSETRON

REACTIONS (6)
  - Myocardial infarction [Unknown]
  - Cardiac failure [Unknown]
  - Cardiomegaly [Unknown]
  - Coronary artery disease [Unknown]
  - Cardiac failure congestive [Unknown]
  - Acute left ventricular failure [Unknown]

NARRATIVE: CASE EVENT DATE: 20160919
